FAERS Safety Report 22183733 (Version 1)
Quarter: 2023Q2

REPORT INFORMATION
  Report Type: Spontaneous
  Country: US (occurrence: US)
  Receive Date: 20230406
  Receipt Date: 20230406
  Transmission Date: 20230721
  Serious: No
  Sender: FDA-Public Use
  Company Number: US-LUNDBECK-DKLU3059423

PATIENT
  Sex: Female

DRUGS (2)
  1. NORTHERA [Suspect]
     Active Substance: DROXIDOPA
     Indication: Autonomic neuropathy
     Route: 065
  2. DROXIDOPA [Suspect]
     Active Substance: DROXIDOPA
     Indication: Autonomic neuropathy
     Route: 065

REACTIONS (4)
  - Confusional state [Not Recovered/Not Resolved]
  - Agitation [Unknown]
  - Hyperhidrosis [Unknown]
  - Muscle spasms [Not Recovered/Not Resolved]
